FAERS Safety Report 18026175 (Version 1)
Quarter: 2020Q3

REPORT INFORMATION
  Report Type: Report from Study
  Country: None (occurrence: HR)
  Receive Date: 20200715
  Receipt Date: 20200715
  Transmission Date: 20201103
  Serious: Yes (Hospitalization, Other)
  Sender: FDA-Public Use
  Company Number: HR-ABBVIE-20P-216-3476838-00

PATIENT
  Age: 60 Year
  Sex: Male

DRUGS (3)
  1. VENETOCLAX. [Suspect]
     Active Substance: VENETOCLAX
     Indication: ACUTE MYELOID LEUKAEMIA
     Dosage: GRADUAL INCREASE OF DOSE PER PROTOCOL
     Route: 048
     Dates: start: 201906, end: 201909
  2. VENETOCLAX. [Suspect]
     Active Substance: VENETOCLAX
     Route: 048
     Dates: start: 202003
  3. VENETOCLAX. [Suspect]
     Active Substance: VENETOCLAX
     Route: 048
     Dates: start: 201911

REACTIONS (13)
  - Intervertebral discitis [Unknown]
  - Groin pain [Recovered/Resolved]
  - Pyrexia [Recovered/Resolved]
  - Intervertebral discitis [Unknown]
  - Pancytopenia [Unknown]
  - Immobile [Unknown]
  - Leukopenia [Unknown]
  - Back pain [Unknown]
  - Epididymitis [Recovered/Resolved]
  - Anaemia [Unknown]
  - Disease progression [Unknown]
  - Intervertebral discitis [Unknown]
  - Thrombocytopenia [Unknown]

NARRATIVE: CASE EVENT DATE: 201908
